FAERS Safety Report 5237969-1 (Version None)
Quarter: 2007Q1

REPORT INFORMATION
  Report Type: 
  Country: None (occurrence: None)
  Receive Date: 20070214
  Receipt Date: 20070206
  Transmission Date: 20070707
  Serious: Yes (Hospitalization, Other)
  Sender: FDA-Public Use
  Company Number: US-PFIZER INC-2004027309

PATIENT
  Sex: Female
  Weight: 85.7 kg

DRUGS (25)
  1. PROCARDIA XL [Suspect]
     Indication: HYPERTENSION
     Route: 048
  2. PROCARDIA XL [Suspect]
     Route: 048
     Dates: start: 20010122, end: 20010204
  3. PROCARDIA XL [Suspect]
     Route: 048
     Dates: start: 20010205, end: 20030829
  4. NIFEDIPINE [Suspect]
     Indication: HYPERTENSION
     Route: 048
     Dates: start: 20040201, end: 20040101
  5. VASOTEC [Suspect]
     Dates: start: 19981213, end: 19990320
  6. COZAAR [Suspect]
     Route: 048
     Dates: start: 19991207, end: 20010122
  7. HYZAAR [Suspect]
     Dates: start: 19991207, end: 20000101
  8. TOPROL-XL [Suspect]
     Dates: start: 19990320
  9. PAXIL [Suspect]
     Dates: start: 19990320
  10. CLONIDINE [Suspect]
     Dates: start: 19990320
  11. BIAXIN [Suspect]
  12. PRILOSEC [Suspect]
     Dates: start: 20011204, end: 20030101
  13. PREMARIN [Suspect]
     Dates: start: 20020225
  14. DIOVANE [Suspect]
     Dates: start: 20020225, end: 20020506
  15. BENICAR [Suspect]
     Dates: end: 20030829
  16. CATAPRES [Suspect]
     Dates: start: 20010122, end: 20010101
  17. OXYCODONE [Suspect]
     Indication: PAIN
     Dates: start: 20010205
  18. LOPRESSOR [Suspect]
     Dates: start: 20010101
  19. PROTONIX [Suspect]
     Dates: start: 20010101
  20. ADALAT [Suspect]
     Dates: start: 20010205
  21. PREVACID [Suspect]
     Dates: start: 20000110
  22. NITROL [Suspect]
     Dates: start: 20020506
  23. HEPARIN [Suspect]
     Dates: start: 20020506
  24. ASPIRIN [Suspect]
     Dates: start: 20020506
  25. VICODIN ES [Suspect]

REACTIONS (40)
  - ABDOMINAL PAIN [None]
  - AGITATION [None]
  - ARTHRALGIA [None]
  - BACK PAIN [None]
  - BLOOD PRESSURE INADEQUATELY CONTROLLED [None]
  - BRONCHITIS [None]
  - CHEST DISCOMFORT [None]
  - CHEST PAIN [None]
  - CORONARY ARTERY DISEASE [None]
  - DEHYDRATION [None]
  - DELUSION [None]
  - DIARRHOEA [None]
  - DISORIENTATION [None]
  - DIZZINESS [None]
  - DUODENITIS [None]
  - ERYTHEMA [None]
  - FACIAL PAIN [None]
  - GASTROENTERITIS [None]
  - HEADACHE [None]
  - HIATUS HERNIA [None]
  - HYPERGLYCAEMIA [None]
  - HYPERTENSIVE CRISIS [None]
  - HYPOAESTHESIA [None]
  - INFECTION [None]
  - INTESTINAL POLYP [None]
  - LIMB DISCOMFORT [None]
  - MUSCULOSKELETAL PAIN [None]
  - MYALGIA [None]
  - NAUSEA [None]
  - OESOPHAGITIS [None]
  - PAIN IN EXTREMITY [None]
  - PNEUMONITIS [None]
  - POLLAKIURIA [None]
  - PRURITUS [None]
  - PURPURA [None]
  - RASH [None]
  - SCIATICA [None]
  - UTERINE LEIOMYOMA [None]
  - VIRAL INFECTION [None]
  - VOMITING [None]
